FAERS Safety Report 15807265 (Version 1)
Quarter: 2019Q1

REPORT INFORMATION
  Report Type: Spontaneous
  Country: RO (occurrence: RO)
  Receive Date: 20190110
  Receipt Date: 20190110
  Transmission Date: 20190417
  Serious: Yes (Other)
  Sender: FDA-Public Use
  Company Number: RO-MYLANLABS-2019M1001545

PATIENT
  Age: 74 Year
  Sex: Female

DRUGS (4)
  1. METHOTREXATE. [Suspect]
     Active Substance: METHOTREXATE
     Indication: TEMPORAL ARTERITIS
     Dosage: UNK (MAINTAINED UP TO THREE YEARS)
     Dates: start: 2014, end: 2017
  2. PREDNISONE. [Suspect]
     Active Substance: PREDNISONE
     Indication: TEMPORAL ARTERITIS
     Dosage: UNK (MAINTAINED UP TO THREE YEARS)
     Dates: start: 2014
  3. METHOTREXATE. [Suspect]
     Active Substance: METHOTREXATE
     Dosage: UNK (HIGH DOSES )
  4. PREDNISONE. [Suspect]
     Active Substance: PREDNISONE
     Dosage: UNK (HIGH DOSES)

REACTIONS (3)
  - Off label use [Unknown]
  - Cataract [Unknown]
  - Upper respiratory tract infection [Unknown]

NARRATIVE: CASE EVENT DATE: 2017
